FAERS Safety Report 24370414 (Version 5)
Quarter: 2024Q4

REPORT INFORMATION
  Report Type: Spontaneous
  Country: MX (occurrence: MX)
  Receive Date: 20240927
  Receipt Date: 20241108
  Transmission Date: 20250115
  Serious: Yes (Life-Threatening, Other)
  Sender: SANDOZ
  Company Number: MX-002147023-NVSC2022MX200391

PATIENT
  Sex: Female
  Weight: 89 kg

DRUGS (11)
  1. METFORMIN [Suspect]
     Active Substance: METFORMIN HYDROCHLORIDE
     Dosage: 2 DOSAGE FORM, QD AT NIGHT
     Route: 048
     Dates: start: 202407
  2. METFORMIN [Suspect]
     Active Substance: METFORMIN HYDROCHLORIDE
     Dosage: 4 DF, QD (2 DOSAGE FORM (200 MG), BID)
     Route: 048
  3. METFORMIN [Suspect]
     Active Substance: METFORMIN HYDROCHLORIDE
     Indication: Blood glucose abnormal
     Dosage: 2 DOSAGE FORM AT NIGHT
     Route: 048
     Dates: start: 2021, end: 2021
  4. METFORMIN [Suspect]
     Active Substance: METFORMIN HYDROCHLORIDE
     Dosage: 2 DOSAGE FORM, QD-ONGOING
     Route: 048
  5. TASIGNA [Suspect]
     Active Substance: NILOTINIB
     Dosage: 2 DOSAGE FORM, QD AT NIGHT
     Route: 048
     Dates: end: 202407
  6. TASIGNA [Suspect]
     Active Substance: NILOTINIB
     Dosage: 4 DF, QD (2 DOSAGE FORM, BID (2 X 200MG, IN THE MORNING AND AT NIGHT)
     Route: 048
     Dates: start: 2014, end: 202407
  7. TASIGNA [Suspect]
     Active Substance: NILOTINIB
     Dosage: 2 DOSAGE FORM, Q12H (2 X 200MG, IN THE MORNING AND AT NIGHT)
     Route: 048
     Dates: start: 2014, end: 202407
  8. TASIGNA [Suspect]
     Active Substance: NILOTINIB
     Dosage: 2 DOSAGE FORM AT NIGHT
     Route: 048
     Dates: start: 2021, end: 2021
  9. TASIGNA [Suspect]
     Active Substance: NILOTINIB
     Indication: Chronic myeloid leukaemia
     Dosage: UNK
     Route: 048
  10. CARBAMAZEPINE [Concomitant]
     Active Substance: CARBAMAZEPINE
     Indication: Trigeminal neuralgia
     Dosage: UNK
     Route: 065
  11. CARBAMAZEPINE [Concomitant]
     Active Substance: CARBAMAZEPINE
     Indication: Neuralgia

REACTIONS (87)
  - Gamma-glutamyltransferase increased [Unknown]
  - Ovarian cancer [Unknown]
  - Hallucination, visual [Unknown]
  - Second primary malignancy [Unknown]
  - Alcoholism [Unknown]
  - Illness [Unknown]
  - COVID-19 [Recovered/Resolved]
  - Liver disorder [Unknown]
  - Memory impairment [Not Recovered/Not Resolved]
  - Feeling abnormal [Not Recovered/Not Resolved]
  - Facial pain [Unknown]
  - Stress [Unknown]
  - Malaise [Unknown]
  - Eating disorder [Unknown]
  - Influenza [Recovered/Resolved]
  - Mysophobia [Unknown]
  - Vein disorder [Unknown]
  - Mood swings [Unknown]
  - Gait disturbance [Unknown]
  - Frustration tolerance decreased [Unknown]
  - Psychiatric symptom [Unknown]
  - Irritability [Unknown]
  - Jealous delusion [Unknown]
  - Decreased immune responsiveness [Unknown]
  - Anger [Unknown]
  - Unevaluable event [Unknown]
  - Apathy [Unknown]
  - Hormone level abnormal [Unknown]
  - Tension [Unknown]
  - Laziness [Unknown]
  - Somnolence [Not Recovered/Not Resolved]
  - Abnormal sleep-related event [Unknown]
  - General symptom [Unknown]
  - Regressive behaviour [Unknown]
  - Anxiety [Not Recovered/Not Resolved]
  - Blood cholesterol increased [Not Recovered/Not Resolved]
  - Blood triglycerides increased [Not Recovered/Not Resolved]
  - Headache [Unknown]
  - Overweight [Unknown]
  - Feeling hot [Unknown]
  - Visual impairment [Not Recovered/Not Resolved]
  - Depressed mood [Unknown]
  - Presyncope [Unknown]
  - Depression [Unknown]
  - Hypertension [Recovered/Resolved]
  - Asthenia [Unknown]
  - Tinnitus [Recovered/Resolved]
  - Weight increased [Unknown]
  - Hot flush [Unknown]
  - Plantar fasciitis [Unknown]
  - Arthralgia [Not Recovered/Not Resolved]
  - Back pain [Not Recovered/Not Resolved]
  - COVID-19 [Recovered/Resolved]
  - Hyperhidrosis [Not Recovered/Not Resolved]
  - Sleep disorder [Not Recovered/Not Resolved]
  - Trigeminal neuralgia [Unknown]
  - Carpal tunnel syndrome [Not Recovered/Not Resolved]
  - Dizziness [Recovered/Resolved]
  - Pain in extremity [Not Recovered/Not Resolved]
  - Fatigue [Unknown]
  - Pain [Unknown]
  - Libido decreased [Not Recovered/Not Resolved]
  - Tendonitis [Not Recovered/Not Resolved]
  - Urine analysis abnormal [Unknown]
  - Urinary squamous epithelial cells increased [Unknown]
  - Tinnitus [Recovered/Resolved]
  - Low density lipoprotein increased [Unknown]
  - Very low density lipoprotein increased [Unknown]
  - Bacterial test positive [Unknown]
  - Blood calcium increased [Unknown]
  - Specific gravity urine abnormal [Unknown]
  - Blood urea nitrogen/creatinine ratio increased [Unknown]
  - Urine abnormality [Unknown]
  - Pharyngitis [Recovered/Resolved]
  - Blood urea increased [Unknown]
  - Alanine aminotransferase increased [Unknown]
  - Aspartate aminotransferase increased [Unknown]
  - Blood alkaline phosphatase increased [Unknown]
  - Nausea [Recovered/Resolved]
  - Diarrhoea [Recovered/Resolved]
  - Abdominal pain upper [Unknown]
  - Cough [Recovering/Resolving]
  - Movement disorder [Unknown]
  - Grip strength decreased [Unknown]
  - Renal disorder [Unknown]
  - Vaginal discharge [Unknown]
  - Incorrect dose administered [Not Recovered/Not Resolved]

NARRATIVE: CASE EVENT DATE: 20210101
